FAERS Safety Report 19230552 (Version 3)
Quarter: 2021Q3

REPORT INFORMATION
  Report Type: Report from Study
  Country: US (occurrence: US)
  Receive Date: 20210507
  Receipt Date: 20210728
  Transmission Date: 20211014
  Serious: No
  Sender: FDA-Public Use
  Company Number: NVSC2021US103524

PATIENT
  Sex: Female

DRUGS (2)
  1. COSENTYX [Suspect]
     Active Substance: SECUKINUMAB
     Dosage: UNK UNK, QW
     Route: 058
     Dates: start: 20210422, end: 20210429
  2. COSENTYX [Suspect]
     Active Substance: SECUKINUMAB
     Indication: PSORIATIC ARTHROPATHY
     Dosage: UNK UNK, UNKNOWN
     Route: 065

REACTIONS (2)
  - Bowel movement irregularity [Unknown]
  - Diarrhoea [Not Recovered/Not Resolved]
